FAERS Safety Report 20805172 (Version 2)
Quarter: 2022Q2

REPORT INFORMATION
  Report Type: Spontaneous
  Country: US (occurrence: None)
  Receive Date: 20220509
  Receipt Date: 20220621
  Transmission Date: 20220721
  Serious: No
  Sender: FDA-Public Use
  Company Number: 2022A171910

PATIENT
  Age: 907 Month
  Sex: Male
  Weight: 104.3 kg

DRUGS (1)
  1. BYDUREON BCISE [Suspect]
     Active Substance: EXENATIDE
     Indication: Parkinson^s disease
     Dosage: 2MG/ML ONCE A WEEK
     Route: 058
     Dates: start: 202204

REACTIONS (7)
  - Injection site swelling [Recovering/Resolving]
  - Injection site nodule [Recovering/Resolving]
  - Injection site erythema [Recovering/Resolving]
  - Wrong technique in device usage process [Unknown]
  - Device leakage [Unknown]
  - Product use issue [Unknown]
  - Drug dose omission by device [Unknown]

NARRATIVE: CASE EVENT DATE: 20220401
